FAERS Safety Report 4488905-7 (Version None)
Quarter: 2004Q4

REPORT INFORMATION
  Report Type: 
  Country: None (occurrence: None)
  Receive Date: 20041029
  Receipt Date: 20040102
  Transmission Date: 20050328
  Serious: Yes (Hospitalization)
  Sender: FDA-Public Use
  Company Number: 200410001DE

PATIENT
  Age: 49 Year
  Sex: Female
  Weight: 84 kg

DRUGS (9)
  1. DOCETAXEL [Suspect]
     Indication: BREAST CANCER
     Route: 042
     Dates: start: 20031029
  2. CAPECITABINE [Suspect]
     Indication: BREAST CANCER
     Route: 042
     Dates: start: 20031029, end: 20031216
  3. DECORTIN-H [Concomitant]
     Route: 048
     Dates: start: 20030901, end: 20030101
  4. OSTAC [Concomitant]
     Indication: METASTASES TO BONE
     Route: 048
     Dates: start: 20010301
  5. MADOPAR [Concomitant]
     Indication: RESTLESS LEGS SYNDROME
     Route: 048
     Dates: start: 19990901
  6. NEXIUM [Concomitant]
     Indication: GASTRIC DISORDER
     Route: 048
  7. NEXIUM [Concomitant]
     Indication: PROPHYLAXIS
     Route: 048
  8. GRANISETRON [Concomitant]
     Indication: ANTIEMETIC SUPPORTIVE CARE
     Dates: start: 20030101
  9. DEXAMETHASONE [Concomitant]

REACTIONS (9)
  - ASTHENIA [None]
  - BLOOD POTASSIUM INCREASED [None]
  - BLOOD SODIUM DECREASED [None]
  - C-REACTIVE PROTEIN INCREASED [None]
  - HYPERGLYCAEMIA [None]
  - MYELITIS [None]
  - NEUTROPENIA [None]
  - PARAPARESIS [None]
  - PARESIS [None]
